FAERS Safety Report 7793614-2 (Version None)
Quarter: 2011Q4

REPORT INFORMATION
  Report Type: 
  Country: None (occurrence: None)
  Receive Date: 20111003
  Receipt Date: 20110928
  Transmission Date: 20120403
  Serious: Yes (Death, Other)
  Sender: FDA-Public Use
  Company Number: US-ROCHE-719719

PATIENT

DRUGS (4)
  1. BENDAMUSTINE [Suspect]
     Indication: B-CELL LYMPHOMA
     Dosage: ON DAYS 1 AND 2 OF EACH CYCLE
     Route: 042
  2. MABTHERA [Suspect]
     Indication: B-CELL LYMPHOMA
     Route: 042
  3. MABTHERA [Suspect]
     Dosage: FORM: INFUSION; ON DAYS 1, 8, 15 AND 22 OF CYCLE 1, AND ON DAY 1 OF CYCLES 2, 3, 4 AND 5
     Route: 042
  4. BORTEZOMIB [Suspect]
     Indication: B-CELL LYMPHOMA
     Dosage: ON DAY 1,8,15 AND 22 OF EACH CYCLE
     Route: 040

REACTIONS (12)
  - FEBRILE NEUTROPENIA [None]
  - DIARRHOEA [None]
  - CARDIAC ARREST [None]
  - SYNCOPE [None]
  - NAUSEA [None]
  - VOMITING [None]
  - HERPES ZOSTER [None]
  - FATIGUE [None]
  - NEUTROPENIA [None]
  - THROMBOCYTOPENIA [None]
  - NEUROPATHY PERIPHERAL [None]
  - ANAEMIA [None]
